FAERS Safety Report 9209752 (Version 2)
Quarter: 2013Q3

REPORT INFORMATION
  Report Type: Spontaneous
  Country: US (occurrence: US)
  Receive Date: 20130404
  Receipt Date: 20130708
  Transmission Date: 20140515
  Serious: Yes (Other)
  Sender: FDA-Public Use
  Company Number: US-PFIZER INC-2013104577

PATIENT
  Sex: 0

DRUGS (2)
  1. LIPITOR [Suspect]
     Dosage: UNK
     Dates: start: 1999
  2. SIMVASTATIN [Suspect]
     Dosage: UNK

REACTIONS (6)
  - Coronary artery occlusion [Unknown]
  - Myocardial infarction [Unknown]
  - Drug ineffective [Unknown]
  - Cardiac neoplasm malignant [Unknown]
  - Overweight [Unknown]
  - Blood cholesterol increased [Unknown]
